FAERS Safety Report 8074031-7 (Version None)
Quarter: 2011Q4

REPORT INFORMATION
  Report Type: 
  Country: None (occurrence: None)
  Receive Date: 20111221
  Receipt Date: 20110314
  Transmission Date: 20120403
  Serious: Yes (Other)
  Sender: FDA-Public Use
  Company Number: PHHY2011US20760

PATIENT
  Sex: Male
  Weight: 97 kg

DRUGS (2)
  1. EXJADE [Suspect]
     Indication: LYMPHATIC SYSTEM NEOPLASM
     Dates: start: 20100913
  2. EXJADE [Suspect]
     Indication: HAEMATOPOIETIC NEOPLASM
     Dates: start: 20100913

REACTIONS (1)
  - HAEMOGLOBIN DECREASED [None]
